FAERS Safety Report 8611932-2 (Version None)
Quarter: 2012Q3

REPORT INFORMATION
  Report Type: 
  Country: None (occurrence: None)
  Receive Date: 20120822
  Receipt Date: 20120807
  Transmission Date: 20120928
  Serious: Yes (Disabling)
  Sender: FDA-Public Use
  Company Number: KR-ROCHE-1105397

PATIENT
  Age: 65 Year
  Sex: Female

DRUGS (3)
  1. AMPICILLIN [Suspect]
     Indication: MENINGITIS PNEUMOCOCCAL
  2. ROCEPHIN [Suspect]
     Indication: MENINGITIS PNEUMOCOCCAL
  3. VANCOMYCIN [Suspect]
     Indication: MENINGITIS PNEUMOCOCCAL

REACTIONS (2)
  - DEAFNESS [None]
  - DRUG RESISTANCE [None]
